FAERS Safety Report 10615270 (Version 1)
Quarter: 2014Q4

REPORT INFORMATION
  Report Type: Spontaneous
  Country: US (occurrence: US)
  Receive Date: 20141201
  Receipt Date: 20141201
  Transmission Date: 20150529
  Serious: No
  Sender: FDA-Public Use
  Company Number: US-PFIZER INC-2014324821

PATIENT
  Age: 36 Year
  Sex: Female
  Weight: 55.33 kg

DRUGS (8)
  1. ZOLOFT [Concomitant]
     Active Substance: SERTRALINE HYDROCHLORIDE
     Indication: AGGRESSION
  2. LYRICA [Suspect]
     Active Substance: PREGABALIN
     Indication: FIBROMYALGIA
  3. PROTONIX [Concomitant]
     Active Substance: PANTOPRAZOLE SODIUM
     Indication: ABDOMINAL DISCOMFORT
     Dosage: UNK
  4. ZOLOFT [Concomitant]
     Active Substance: SERTRALINE HYDROCHLORIDE
     Indication: PANIC ATTACK
  5. ZOLOFT [Concomitant]
     Active Substance: SERTRALINE HYDROCHLORIDE
     Indication: ANXIETY
     Dosage: UNK
  6. LYRICA [Suspect]
     Active Substance: PREGABALIN
     Indication: HYPOAESTHESIA
  7. LYRICA [Suspect]
     Active Substance: PREGABALIN
     Indication: NERVE INJURY
     Dosage: 75 MG, UNK
  8. ZANTAC [Concomitant]
     Active Substance: RANITIDINE HYDROCHLORIDE
     Indication: ABDOMINAL DISCOMFORT
     Dosage: 150 MG, UNK

REACTIONS (4)
  - Insomnia [Unknown]
  - Muscle spasms [Unknown]
  - Pain [Unknown]
  - Pain in extremity [Unknown]
